FAERS Safety Report 5242739-4 (Version None)
Quarter: 2007Q1

REPORT INFORMATION
  Report Type: 
  Country: None (occurrence: None)
  Receive Date: 20070214
  Receipt Date: 20070129
  Transmission Date: 20070707
  Serious: Yes (Hospitalization)
  Sender: FDA-Public Use
  Company Number: 15630

PATIENT
  Age: 67 Year
  Sex: Female
  Weight: 57 kg

DRUGS (3)
  1. CARBOPLATIN [Suspect]
     Dates: start: 20060917, end: 20061212
  2. TAXOL [Suspect]
     Dates: start: 20060917, end: 20061121
  3. EFFEXOR [Suspect]
     Dates: start: 20061009, end: 20070108

REACTIONS (4)
  - BONE MARROW FAILURE [None]
  - NEUROPATHY [None]
  - PANCYTOPENIA [None]
  - PURPURA [None]
